FAERS Safety Report 20836775 (Version 4)
Quarter: 2023Q2

REPORT INFORMATION
  Report Type: Report from Study
  Country: US (occurrence: US)
  Receive Date: 20220517
  Receipt Date: 20230524
  Transmission Date: 20230722
  Serious: Yes (Hospitalization)
  Sender: FDA-Public Use
  Company Number: US-ARGENX-2022-ARGX-US000751

PATIENT
  Sex: Male
  Weight: 79 kg

DRUGS (1)
  1. VYVGART [Suspect]
     Active Substance: EFGARTIGIMOD ALFA-FCAB
     Indication: Myasthenia gravis
     Dosage: 820 MG
     Dates: start: 20220412

REACTIONS (11)
  - Syncope [Unknown]
  - Abdominal pain lower [Unknown]
  - Constipation [Unknown]
  - Inappropriate schedule of product administration [Unknown]
  - Influenza [Unknown]
  - Asthenia [Unknown]
  - Dyspnoea [Unknown]
  - Choking [Unknown]
  - Dysphagia [Unknown]
  - Muscular weakness [Unknown]
  - COVID-19 [Unknown]
